FAERS Safety Report 26209448 (Version 1)
Quarter: 2025Q4

REPORT INFORMATION
  Report Type: Spontaneous
  Country: EU (occurrence: EU)
  Receive Date: 20251229
  Receipt Date: 20251229
  Transmission Date: 20260118
  Serious: Yes (Hospitalization)
  Sender: TEVA
  Company Number: None

PATIENT
  Age: 77 Year
  Sex: Female

DRUGS (4)
  1. CLOPIDOGREL [Suspect]
     Active Substance: CLOPIDOGREL BISULFATE
     Indication: Anticoagulant therapy
     Dosage: THEN 1 TABLET ONCE A DAY
     Route: 048
     Dates: end: 20230127
  2. CLOPIDOGREL [Suspect]
     Active Substance: CLOPIDOGREL BISULFATE
     Indication: Anticoagulant therapy
     Dosage: FIRST DAY 4 TABLETS: BRAND NAME NOT SPECIFIED
     Route: 048
     Dates: start: 20230125
  3. LERCANIDIPINE [Suspect]
     Active Substance: LERCANIDIPINE
     Indication: Product used for unknown indication
     Dosage: ONCE A DAY: BRAND NAME NOT SPECIFIED
     Route: 048
     Dates: start: 20230125, end: 20230127
  4. ASPIRIN [Suspect]
     Active Substance: ASPIRIN
     Indication: Anticoagulant therapy
     Dosage: 1 TIME PER DAY: BRAND NAME NOT SPECIFIED
     Route: 048
     Dates: start: 20230125, end: 20230127

REACTIONS (1)
  - Gastric haemorrhage [Recovered/Resolved]
